FAERS Safety Report 6863161-0 (Version None)
Quarter: 2010Q3

REPORT INFORMATION
  Report Type: 
  Country: None (occurrence: None)
  Receive Date: 20100721
  Receipt Date: 20100716
  Transmission Date: 20110219
  Serious: Yes (Other)
  Sender: FDA-Public Use
  Company Number: JP-BRISTOL-MYERS SQUIBB COMPANY-15193170

PATIENT
  Age: 45 Year
  Sex: Male

DRUGS (4)
  1. BARACLUDE [Suspect]
     Indication: HEPATITIS B
     Route: 048
     Dates: start: 20100707
  2. ALOSITOL [Concomitant]
     Route: 048
  3. RABEPRAZOLE SODIUM [Concomitant]
     Route: 048
  4. GLYCYRON [Concomitant]

REACTIONS (3)
  - HYPERAMMONAEMIA [None]
  - LACTIC ACIDOSIS [None]
  - LOSS OF CONSCIOUSNESS [None]
